FAERS Safety Report 8468136 (Version 2)
Quarter: 2013Q3

REPORT INFORMATION
  Report Type: Spontaneous
  Country: US (occurrence: US)
  Receive Date: 20120320
  Receipt Date: 20130924
  Transmission Date: 20140515
  Serious: Yes (Hospitalization)
  Sender: FDA-Public Use
  Company Number: US-GLAXOSMITHKLINE-A0896418A

PATIENT
  Age: 65 Year
  Sex: Female
  Weight: 81.8 kg

DRUGS (4)
  1. AVANDIA [Suspect]
     Indication: DIABETES MELLITUS
     Dosage: 8MG PER DAY
     Route: 048
     Dates: start: 2006, end: 200706
  2. GLUCOPHAGE [Concomitant]
  3. LISINOPRIL [Concomitant]
  4. VOLTAREN [Concomitant]

REACTIONS (3)
  - Cerebrovascular accident [Unknown]
  - Cardiac disorder [Unknown]
  - Cardiovascular disorder [Unknown]
